FAERS Safety Report 6391838-2 (Version None)
Quarter: 2009Q4

REPORT INFORMATION
  Report Type: 
  Country: None (occurrence: None)
  Receive Date: 20091005
  Receipt Date: 20080921
  Transmission Date: 20100525
  Serious: Yes (Other)
  Sender: FDA-Public Use
  Company Number: A-CH2009-27649

PATIENT
  Age: 26 Year
  Sex: Male

DRUGS (3)
  1. TRACLEER [Suspect]
     Indication: PULMONARY ARTERIAL HYPERTENSION
     Dosage: 125 MG, BID, ORAL ; 62.5 MG, BID, ORAL ; 250 MG, BID, ORAL
     Route: 048
     Dates: start: 20040101
  2. ILOPROST(ILOPROST) [Suspect]
  3. SILDENAFIL CITRATE [Suspect]
     Indication: PULMONARY ARTERIAL HYPERTENSION

REACTIONS (7)
  - CONTINUOUS HAEMODIAFILTRATION [None]
  - LIVER TRANSPLANT [None]
  - LUNG DISORDER [None]
  - POST PROCEDURAL COMPLICATION [None]
  - RENAL IMPAIRMENT [None]
  - RIGHT VENTRICULAR SYSTOLIC PRESSURE INCREASED [None]
  - SEPSIS [None]
